FAERS Safety Report 12742514 (Version 1)
Quarter: 2016Q3

REPORT INFORMATION
  Report Type: Spontaneous
  Country: BR (occurrence: BR)
  Receive Date: 20160914
  Receipt Date: 20160914
  Transmission Date: 20161109
  Serious: Yes (Death)
  Sender: FDA-Public Use
  Company Number: BR-JNJFOC-20160911302

PATIENT
  Sex: Male

DRUGS (1)
  1. FENTANYL. [Suspect]
     Active Substance: FENTANYL
     Indication: PRODUCT USED FOR UNKNOWN INDICATION
     Route: 065

REACTIONS (6)
  - Overdose [Unknown]
  - Intentional product misuse [Unknown]
  - Application site haemorrhage [Unknown]
  - Off label use [Unknown]
  - Coma [Unknown]
  - Poisoning [Fatal]

NARRATIVE: CASE EVENT DATE: 201512
